FAERS Safety Report 8481705-2 (Version None)
Quarter: 2012Q3

REPORT INFORMATION
  Report Type: 
  Country: None (occurrence: None)
  Receive Date: 20120702
  Receipt Date: 20120622
  Transmission Date: 20120928
  Serious: Yes (Other)
  Sender: FDA-Public Use
  Company Number: JP-ROCHE-1082153

PATIENT
  Sex: Female

DRUGS (3)
  1. CARBOPLATIN [Concomitant]
     Indication: LUNG NEOPLASM MALIGNANT
     Dosage: DOSAGE IS UNCERTAIN.
     Route: 041
  2. AVASTIN [Suspect]
     Indication: LUNG NEOPLASM MALIGNANT
     Route: 041
  3. PACLITAXEL [Concomitant]
     Indication: LUNG NEOPLASM MALIGNANT
     Dosage: DOSAGE IS UNCERTAIN.
     Route: 041

REACTIONS (1)
  - LEUKOENCEPHALOPATHY [None]
